FAERS Safety Report 13890773 (Version 1)
Quarter: 2017Q3

REPORT INFORMATION
  Report Type: Spontaneous
  Country: ZA (occurrence: ZA)
  Receive Date: 20170822
  Receipt Date: 20170822
  Transmission Date: 20171127
  Serious: Yes (Death, Other)
  Sender: FDA-Public Use
  Company Number: ZA-MYLANLABS-2017M1051769

PATIENT

DRUGS (2)
  1. MIZART [Suspect]
     Active Substance: TELMISARTAN
     Indication: HYPERTENSION
     Dosage: 80 MG, UNK
     Route: 048
     Dates: end: 20170623
  2. BRAZEPAM [Suspect]
     Active Substance: BROMAZEPAM
     Indication: STRESS
     Dosage: 6 MG, UNK
     Route: 048
     Dates: end: 20170623

REACTIONS (1)
  - Death [Fatal]

NARRATIVE: CASE EVENT DATE: 20170623
